FAERS Safety Report 7849994-2 (Version None)
Quarter: 2011Q4

REPORT INFORMATION
  Report Type: 
  Country: None (occurrence: None)
  Receive Date: 20111021
  Receipt Date: 20111014
  Transmission Date: 20120403
  Serious: Yes (Death, Hospitalization)
  Sender: FDA-Public Use
  Company Number: AUR-APL-2011-05395

PATIENT
  Age: 87 Year
  Sex: Female

DRUGS (7)
  1. CANDESARTAN W/HYDROCHLOROTHIAZIDE (CANDESARTAN W/HYDROCHLOROTHIAZIDE) [Concomitant]
  2. METFORMIN HCL [Suspect]
     Indication: PRODUCT USED FOR UNKNOWN INDICATION
     Dosage: 2550 MG (850 MG, 1 IN 8 HR),
  3. TORSEMIDE [Concomitant]
  4. NIFEDIPINE [Concomitant]
  5. REPAGLINIDE [Concomitant]
  6. DEFLAZACORT (DEFLAZACORT) [Concomitant]
  7. OMEPRAZOLE [Concomitant]

REACTIONS (15)
  - BLOOD CREATININE INCREASED [None]
  - WHITE BLOOD CELL COUNT INCREASED [None]
  - PROTHROMBIN TIME PROLONGED [None]
  - BLOOD PH DECREASED [None]
  - DISORIENTATION [None]
  - MUCOSAL DRYNESS [None]
  - BLOOD BICARBONATE DECREASED [None]
  - DIARRHOEA [None]
  - VOMITING [None]
  - HAEMOGLOBIN DECREASED [None]
  - BLOOD LACTIC ACID INCREASED [None]
  - BLOOD GLUCOSE INCREASED [None]
  - DEPRESSED LEVEL OF CONSCIOUSNESS [None]
  - INFECTION [None]
  - BLOOD POTASSIUM INCREASED [None]
